FAERS Safety Report 9034947 (Version 1)
Quarter: 2013Q1

REPORT INFORMATION
  Report Type: Report from Study
  Country: US (occurrence: US)
  Receive Date: 20130129
  Receipt Date: 20130129
  Transmission Date: 20140127
  Serious: No
  Sender: FDA-Public Use
  Company Number: US-ABBOTT-12P-163-0889740-00

PATIENT
  Age: 57 None
  Sex: Female
  Weight: 73.55 kg

DRUGS (4)
  1. HUMIRA 40 MG/ 0.8 ML PRE-FILLED SYRINGE [Suspect]
     Indication: PSORIATIC ARTHROPATHY
     Route: 058
     Dates: start: 2011, end: 20111221
  2. DILTIAZEM [Concomitant]
     Indication: PRODUCT USED FOR UNKNOWN INDICATION
     Dosage: DAILY
  3. BETA BLOCKING AGENTS [Concomitant]
     Indication: PRODUCT USED FOR UNKNOWN INDICATION
  4. BONIVA [Concomitant]
     Indication: OSTEOPENIA

REACTIONS (9)
  - Drug ineffective [Not Recovered/Not Resolved]
  - Psoriatic arthropathy [Not Recovered/Not Resolved]
  - Musculoskeletal stiffness [Not Recovered/Not Resolved]
  - Skin lesion [Not Recovered/Not Resolved]
  - Psoriasis [Not Recovered/Not Resolved]
  - Psoriasis [Not Recovered/Not Resolved]
  - Psoriasis [Not Recovered/Not Resolved]
  - Pruritus [Not Recovered/Not Resolved]
  - Psoriasis [Unknown]
